FAERS Safety Report 8873880 (Version 1)
Quarter: 2012Q4

REPORT INFORMATION
  Report Type: 
  Country: TW (occurrence: TW)
  Receive Date: 20121030
  Receipt Date: 20121030
  Transmission Date: 20130627
  Serious: Yes (Hospitalization)
  Sender: FDA-Public Use
  Company Number: PHHY2012TW095482

PATIENT
  Age: 30 Year
  Sex: Female

DRUGS (3)
  1. VENLAFAXINE [Suspect]
  2. BUPROPION [Suspect]
     Dosage: 300 mg, UNK
  3. LORAZEPAM [Suspect]

REACTIONS (22)
  - Central nervous system necrosis [Unknown]
  - Tachycardia [Unknown]
  - Blood pressure decreased [Recovered/Resolved]
  - Electrocardiogram QRS complex prolonged [Recovered/Resolved]
  - Suicide attempt [Unknown]
  - Serotonin syndrome [Unknown]
  - Agitation [Unknown]
  - Myoclonus [Unknown]
  - Somnolence [Unknown]
  - Altered state of consciousness [Recovered/Resolved]
  - Choreoathetosis [Not Recovered/Not Resolved]
  - Confusional state [Unknown]
  - Akathisia [Recovered/Resolved]
  - Pyrexia [Unknown]
  - Respiratory distress [Unknown]
  - Oxygen saturation decreased [Recovered/Resolved]
  - Transaminases increased [Unknown]
  - Leukocytosis [Unknown]
  - Blood creatine phosphokinase increased [Unknown]
  - Blood creatinine increased [Unknown]
  - Intentional overdose [Unknown]
  - Drug withdrawal syndrome [Unknown]
